FAERS Safety Report 4466058-9 (Version None)
Quarter: 2004Q3

REPORT INFORMATION
  Report Type: 
  Country: None (occurrence: None)
  Receive Date: 20040930
  Receipt Date: 20040914
  Transmission Date: 20050211
  Serious: No
  Sender: FDA-Public Use
  Company Number: A04200400855

PATIENT
  Age: 29 Year
  Sex: Female

DRUGS (2)
  1. ELOXATIN [Suspect]
     Indication: COLORECTAL CANCER
     Dosage: 108 MG/M2 OTHER INTRAVENOUS DRIP
     Route: 041
     Dates: start: 20040901, end: 20040901
  2. CELODA (CAPECITABINE) [Concomitant]

REACTIONS (3)
  - INJECTION SITE PARAESTHESIA [None]
  - INJECTION SITE REACTION [None]
  - MONOPLEGIA [None]
